FAERS Safety Report 21582495 (Version 2)
Quarter: 2022Q4

REPORT INFORMATION
  Report Type: Spontaneous
  Country: AU (occurrence: AU)
  Receive Date: 20221111
  Receipt Date: 20221116
  Transmission Date: 20230112
  Serious: No
  Sender: FDA-Public Use
  Company Number: AU-ORGANON-O2211AUS000817

PATIENT
  Sex: Female
  Weight: 66 kg

DRUGS (1)
  1. ETONOGESTREL [Suspect]
     Active Substance: ETONOGESTREL
     Indication: Contraception
     Dosage: 1 IMPLANT
     Route: 058
     Dates: start: 20220821, end: 20221104

REACTIONS (6)
  - Staphylococcal infection [Recovering/Resolving]
  - Implant site scar [Unknown]
  - Implant site induration [Unknown]
  - Implant site pustules [Unknown]
  - Complication of device removal [Recovered/Resolved]
  - Product contamination [Unknown]

NARRATIVE: CASE EVENT DATE: 20220101
